FAERS Safety Report 11699738 (Version 1)
Quarter: 2015Q4

REPORT INFORMATION
  Report Type: Spontaneous
  Country: US (occurrence: US)
  Receive Date: 20151105
  Receipt Date: 20151105
  Transmission Date: 20160304
  Serious: Yes (Other)
  Sender: FDA-Public Use
  Company Number: US-ROCHE-1294997

PATIENT
  Age: 43 Year
  Sex: Male

DRUGS (4)
  1. CLONAZEPAM. [Suspect]
     Active Substance: CLONAZEPAM
     Indication: PRODUCT USED FOR UNKNOWN INDICATION
     Route: 065
  2. GABAPENTIN. [Concomitant]
     Active Substance: GABAPENTIN
  3. BACLOFEN. [Concomitant]
     Active Substance: BACLOFEN
  4. RITUXAN [Suspect]
     Active Substance: RITUXIMAB
     Indication: MULTIPLE SCLEROSIS
     Dosage: 2 DOSES
     Route: 042
     Dates: start: 20130620

REACTIONS (24)
  - Eye pain [Unknown]
  - Hemianaesthesia [Unknown]
  - Headache [Unknown]
  - Bone pain [Recovered/Resolved]
  - Headache [Not Recovered/Not Resolved]
  - Tinnitus [Not Recovered/Not Resolved]
  - Dyspnoea [Not Recovered/Not Resolved]
  - Palpitations [Unknown]
  - Nasal congestion [Unknown]
  - Neck pain [Not Recovered/Not Resolved]
  - Multiple sclerosis relapse [Unknown]
  - Dry eye [Unknown]
  - Facial pain [Not Recovered/Not Resolved]
  - VIIth nerve paralysis [Not Recovered/Not Resolved]
  - Skin burning sensation [Not Recovered/Not Resolved]
  - VIIth nerve paralysis [Unknown]
  - Pain [Unknown]
  - VIIth nerve paralysis [Unknown]
  - Nausea [Unknown]
  - Chest discomfort [Not Recovered/Not Resolved]
  - Hyperhidrosis [Not Recovered/Not Resolved]
  - Drooling [Unknown]
  - Hypersomnia [Recovered/Resolved]
  - Ill-defined disorder [Unknown]

NARRATIVE: CASE EVENT DATE: 20130620
